FAERS Safety Report 5216882-X (Version None)
Quarter: 2007Q1

REPORT INFORMATION
  Report Type: 
  Country: None (occurrence: None)
  Receive Date: 20070119
  Receipt Date: 20070103
  Transmission Date: 20070707
  Serious: Yes (Other)
  Sender: FDA-Public Use
  Company Number: TRP_0909_2007

PATIENT
  Age: 48 Year
  Sex: Male
  Weight: 78.0187 kg

DRUGS (2)
  1. RIBASPHERE [Suspect]
     Indication: HEPATITIS C
     Dosage: DF PO
     Route: 048
  2. PEGASYS [Suspect]
     Indication: HEPATITIS C
     Dosage: DF SC
     Route: 058

REACTIONS (9)
  - DEVICE LEAKAGE [None]
  - DIABETES MELLITUS [None]
  - DYSPNOEA [None]
  - INCREASED APPETITE [None]
  - INFLUENZA LIKE ILLNESS [None]
  - INSOMNIA [None]
  - NIGHT BLINDNESS [None]
  - PRURITUS [None]
  - WRONG DRUG ADMINISTERED [None]
